FAERS Safety Report 6920112-8 (Version None)
Quarter: 2010Q3

REPORT INFORMATION
  Report Type: 
  Country: None (occurrence: None)
  Receive Date: 20100811
  Receipt Date: 20100705
  Transmission Date: 20110219
  Serious: Yes (Hospitalization, Other)
  Sender: FDA-Public Use
  Company Number: PHHY2010JP45215

PATIENT
  Age: 78 Year
  Sex: Male
  Weight: 63 kg

DRUGS (6)
  1. DIOVAN [Suspect]
     Dosage: 40 MG, QD
     Route: 048
     Dates: start: 20080415
  2. LIPIDIL [Concomitant]
     Dosage: 67 MG
     Route: 048
     Dates: start: 20080616
  3. LIPIDIL [Concomitant]
     Dosage: 16 MG
     Route: 048
  4. LIVALO KOWA [Concomitant]
     Dosage: 2 MG
     Route: 048
     Dates: start: 20071128
  5. LIVALO KOWA [Concomitant]
     Dosage: 1 MG
     Route: 048
  6. ASPIRIN [Concomitant]
     Dosage: 100 MG
     Route: 048
     Dates: start: 20071116

REACTIONS (3)
  - BOWEN'S DISEASE [None]
  - HEART RATE DECREASED [None]
  - TUMOUR EXCISION [None]
